FAERS Safety Report 8829186 (Version 1)
Quarter: 2012Q4

REPORT INFORMATION
  Report Type: 
  Country: US (occurrence: US)
  Receive Date: 20121009
  Receipt Date: 20121009
  Transmission Date: 20130627
  Serious: Yes (Other)
  Sender: FDA-Public Use
  Company Number: US-MERCK-1210USA002718

PATIENT
  Sex: Female

DRUGS (3)
  1. PEG-INTRON [Suspect]
     Indication: HEPATITIS C
     Dosage: UNK
     Dates: start: 20111029
  2. REBETOL [Suspect]
     Dosage: UNK
     Route: 048
     Dates: start: 20111029
  3. TELAPREVIR [Concomitant]
     Dosage: UNK
     Dates: start: 20111029, end: 20120117

REACTIONS (1)
  - Diabetes mellitus [Unknown]
